FAERS Safety Report 4804745-0 (Version None)
Quarter: 2005Q4

REPORT INFORMATION
  Report Type: 
  Country: None (occurrence: None)
  Receive Date: 20051017
  Receipt Date: 20051007
  Transmission Date: 20060501
  Serious: Yes (Hospitalization, Disabling)
  Sender: FDA-Public Use
  Company Number: CHWYE865328JUL05

PATIENT
  Age: 39 Year
  Sex: Female

DRUGS (2)
  1. EFFEXOR [Suspect]
     Indication: DEPRESSION
     Dosage: 37.5 MG 1X PER 1 DAY ORAL
     Route: 048
     Dates: start: 20050726, end: 20050726
  2. LEXOTANIL (BROMAZEPAM) [Concomitant]

REACTIONS (4)
  - ANXIETY [None]
  - BURNING SENSATION [None]
  - CONDITION AGGRAVATED [None]
  - THIRST [None]
